FAERS Safety Report 7343156-3 (Version None)
Quarter: 2011Q1

REPORT INFORMATION
  Report Type: 
  Country: None (occurrence: None)
  Receive Date: 20110310
  Receipt Date: 20110301
  Transmission Date: 20110831
  Serious: Yes (Hospitalization, Other)
  Sender: FDA-Public Use
  Company Number: JP-JNJFOC-20110203181

PATIENT
  Sex: Female
  Weight: 46 kg

DRUGS (10)
  1. DOXIL [Suspect]
     Route: 042
  2. ALOXI [Concomitant]
     Indication: OVARIAN CANCER RECURRENT
     Route: 041
  3. DECADRON [Concomitant]
     Indication: OVARIAN CANCER RECURRENT
     Route: 041
  4. ADEROXAL [Concomitant]
     Indication: OVARIAN CANCER RECURRENT
     Dosage: DOSE= 0.6 G
     Route: 048
  5. AZUNOL [Concomitant]
     Indication: OVARIAN CANCER RECURRENT
     Route: 049
  6. NAIXAN [Concomitant]
     Indication: OVARIAN CANCER RECURRENT
     Route: 048
  7. EMEND [Concomitant]
     Indication: OVARIAN CANCER RECURRENT
     Route: 048
  8. DOXIL [Suspect]
     Indication: OVARIAN CANCER RECURRENT
     Route: 042
  9. GASTER D [Concomitant]
     Indication: OVARIAN CANCER RECURRENT
     Route: 048
  10. SELBEX [Concomitant]
     Indication: OVARIAN CANCER RECURRENT
     Route: 048

REACTIONS (3)
  - INTESTINAL OBSTRUCTION [None]
  - INTERSTITIAL LUNG DISEASE [None]
  - HAEMOGLOBIN DECREASED [None]
